FAERS Safety Report 23930205 (Version 2)
Quarter: 2024Q3

REPORT INFORMATION
  Report Type: Spontaneous
  Country: BR (occurrence: BR)
  Receive Date: 20240602
  Receipt Date: 20240711
  Transmission Date: 20241016
  Serious: No
  Sender: SANDOZ
  Company Number: BR-002147023-NVSC2024BR091868

PATIENT
  Age: 57 Year
  Sex: Female
  Weight: 52 kg

DRUGS (9)
  1. ANASTROZOLE [Suspect]
     Active Substance: ANASTROZOLE
     Indication: Product used for unknown indication
     Dosage: UNK
     Route: 065
     Dates: start: 2022, end: 202305
  2. DULOXETINE [Suspect]
     Active Substance: DULOXETINE
     Indication: Depression
     Dosage: 120 MG (2 TABLETS OF 60 MG)
     Route: 048
  3. DULOXETINE [Suspect]
     Active Substance: DULOXETINE
     Indication: Pain
     Dosage: 60 MG, OTHER (2 TABLETS IN THE MORNING)
     Route: 065
  4. DIPYRONE [Suspect]
     Active Substance: DIPYRONE
     Indication: Pain
     Dosage: 2 DF, Q6H [OTHER (EVERY 6 HOURS)]
     Route: 065
  5. FULVESTRANT [Suspect]
     Active Substance: FULVESTRANT
     Indication: Product used for unknown indication
     Dosage: UNK (2ND LINE OF TREATMENT)
     Route: 030
  6. KISQALI [Suspect]
     Active Substance: RIBOCICLIB
     Dosage: 2 DF, QD (2 DOSAGE FORM, QD (AT 11:30 A.M.))
     Route: 065
  7. KISQALI [Suspect]
     Active Substance: RIBOCICLIB
     Indication: Product used for unknown indication
     Dosage: 3 DF (3 DOSAGE FORM)
     Route: 065
  8. PREGABALIN [Suspect]
     Active Substance: PREGABALIN
     Indication: Product used for unknown indication
     Dosage: UNK UNK, BID  (BEFORE THE RIBOCICLIB AND AT NIGHT)
     Route: 065
  9. VITAMIN D NOS [Suspect]
     Active Substance: CHOLECALCIFEROL\ERGOCALCIFEROL
     Indication: Product used for unknown indication
     Dosage: UNK UNK, BID  (AFTER LUNCH AND AT NIGHT)
     Route: 065

REACTIONS (20)
  - Thyroid hormones increased [Unknown]
  - Bone disorder [Unknown]
  - Vitamin D decreased [Unknown]
  - Blood triglycerides increased [Unknown]
  - Blood test abnormal [Unknown]
  - Positron emission tomogram abnormal [Unknown]
  - Fear [Unknown]
  - Discouragement [Recovering/Resolving]
  - Dyspepsia [Recovered/Resolved]
  - Discomfort [Unknown]
  - Weight increased [Not Recovered/Not Resolved]
  - Pain [Unknown]
  - Depression [Recovering/Resolving]
  - Headache [Recovered/Resolved with Sequelae]
  - Depressed mood [Recovering/Resolving]
  - Emotional disorder [Unknown]
  - Fatigue [Recovered/Resolved with Sequelae]
  - Malaise [Recovering/Resolving]
  - Blood cholesterol increased [Unknown]
  - Diarrhoea [Recovered/Resolved]

NARRATIVE: CASE EVENT DATE: 20230510
